FAERS Safety Report 8710322 (Version 4)
Quarter: 2012Q4

REPORT INFORMATION
  Report Type: 
  Country: JP (occurrence: JP)
  Receive Date: 20120807
  Receipt Date: 20121002
  Transmission Date: 20130627
  Serious: Yes (Death)
  Sender: FDA-Public Use
  Company Number: JP-AMGEN-JPNSP2012048727

PATIENT
  Age: 68 Year
  Sex: Female

DRUGS (7)
  1. ENBREL [Suspect]
     Indication: RHEUMATOID ARTHRITIS
     Dosage: UNK
     Route: 058
     Dates: start: 200702, end: 201108
  2. RHEUMATREX                         /00113801/ [Suspect]
     Indication: RHEUMATOID ARTHRITIS
     Dosage: UNK
     Route: 048
     Dates: start: 2002, end: 201012
  3. REMICADE [Concomitant]
     Indication: RHEUMATOID ARTHRITIS
     Dosage: UNK
     Route: 041
     Dates: start: 200508, end: 200702
  4. PREDONINE /00016201/ [Concomitant]
     Indication: RHEUMATOID ARTHRITIS
     Dosage: UNK
     Route: 048
     Dates: start: 1998, end: 201203
  5. PROGRAF [Concomitant]
     Indication: RHEUMATOID ARTHRITIS
     Dosage: UNK
     Route: 048
     Dates: start: 201012, end: 201108
  6. ORENCIA [Concomitant]
     Indication: RHEUMATOID ARTHRITIS
     Dosage: UNK
     Route: 041
     Dates: start: 201111, end: 201203
  7. LOXOPROFEN SODIUM [Concomitant]
     Indication: RHEUMATOID ARTHRITIS
     Dosage: UNK

REACTIONS (1)
  - Lymphoma [Fatal]
